FAERS Safety Report 8197430-1 (Version None)
Quarter: 2012Q1

REPORT INFORMATION
  Report Type: 
  Country: None (occurrence: None)
  Receive Date: 20120309
  Receipt Date: 20120222
  Transmission Date: 20120608
  Serious: No
  Sender: FDA-Public Use
  Company Number: US-B.I. PHARMACEUTICALS,INC./RIDGEFIELD-2011-BP-20962BP

PATIENT
  Sex: Female

DRUGS (11)
  1. TRAMADOL HCL [Concomitant]
     Indication: ARTHRALGIA
     Dosage: 200 MG
     Route: 048
     Dates: start: 19920101
  2. ASTHALIN [Concomitant]
     Indication: CHRONIC OBSTRUCTIVE PULMONARY DISEASE
     Route: 055
     Dates: start: 20070101
  3. DUONEB [Concomitant]
     Indication: CHRONIC OBSTRUCTIVE PULMONARY DISEASE
     Route: 055
     Dates: start: 20070101
  4. DIGOXIN [Concomitant]
     Indication: CARDIAC DISORDER
     Dosage: 125 MCG
     Route: 048
     Dates: start: 20110201
  5. PRADAXA [Suspect]
     Indication: ATRIAL FIBRILLATION
     Dosage: 300 MG
     Route: 048
     Dates: start: 20110601
  6. NITROSTAT [Concomitant]
     Indication: CHEST PAIN
     Route: 060
     Dates: start: 20110401
  7. CALCIUM [Concomitant]
     Indication: SUPPLEMENTATION THERAPY
     Route: 048
  8. LASIX [Concomitant]
     Indication: CARDIAC DISORDER
     Route: 048
  9. VENTOLIN DS [Concomitant]
     Indication: CHRONIC OBSTRUCTIVE PULMONARY DISEASE
     Route: 055
     Dates: start: 20070101
  10. LISINOPRIL [Concomitant]
     Indication: HYPERTENSION
     Dosage: 20 MG
     Route: 048
     Dates: start: 20080101
  11. CARDIZEM [Concomitant]
     Indication: CARDIAC DISORDER
     Dosage: 240 MG
     Route: 048

REACTIONS (5)
  - DYSPNOEA [None]
  - OEDEMA PERIPHERAL [None]
  - ACNE [None]
  - HEAD DISCOMFORT [None]
  - FATIGUE [None]
